FAERS Safety Report 15950082 (Version 4)
Quarter: 2020Q2

REPORT INFORMATION
  Report Type: Report from Study
  Country: US (occurrence: US)
  Receive Date: 20190212
  Receipt Date: 20200630
  Transmission Date: 20200713
  Serious: Yes (Hospitalization)
  Sender: FDA-Public Use
  Company Number: US-ROCHE-2257659

PATIENT
  Age: 66 Year
  Sex: Male
  Weight: 144.7 kg

DRUGS (10)
  1. ALOE VERA [Concomitant]
     Active Substance: ALOE VERA LEAF
  2. CHOLECALCIFEROL [Concomitant]
     Active Substance: CHOLECALCIFEROL
  3. OXYBUTYNIN. [Concomitant]
     Active Substance: OXYBUTYNIN CHLORIDE
  4. TURMERIC ROOT EXTRACT [Concomitant]
     Active Substance: TURMERIC
  5. GINGER [ZINGIBER OFFICINALE] [Concomitant]
     Active Substance: GINGER
  6. CETIRIZINE [Concomitant]
     Active Substance: CETIRIZINE HYDROCHLORIDE
  7. ATEZOLIZUMAB. [Suspect]
     Active Substance: ATEZOLIZUMAB
     Indication: BLADDER CANCER
     Dosage: DATE OF MOST RECENT DOSE PRIOR TO EVENT ONSET: 05/NOV/2018 (CYCLE 3 DAY 1)
     Route: 042
     Dates: start: 20180921
  8. CRANBERRY [VACCINIUM SPP.] [Concomitant]
  9. ZYRTEC [Concomitant]
     Active Substance: CETIRIZINE HYDROCHLORIDE
  10. TAMSULOSIN [Concomitant]
     Active Substance: TAMSULOSIN

REACTIONS (10)
  - Oesophagitis [Recovered/Resolved]
  - Acidosis [Recovered/Resolved]
  - Nausea [Recovered/Resolved]
  - Leukocytosis [Recovered/Resolved]
  - Atrial fibrillation [Recovered/Resolved]
  - Hyperglycaemia [Not Recovered/Not Resolved]
  - Abdominal pain [Recovered/Resolved]
  - Duodenal ulcer [Recovered/Resolved]
  - Glucose tolerance impaired [Not Recovered/Not Resolved]
  - Vomiting [Recovered/Resolved]

NARRATIVE: CASE EVENT DATE: 20181123
